FAERS Safety Report 24308322 (Version 1)
Quarter: 2024Q3

REPORT INFORMATION
  Report Type: Spontaneous
  Country: DE (occurrence: DE)
  Receive Date: 20240911
  Receipt Date: 20240911
  Transmission Date: 20241017
  Serious: Yes (Life-Threatening, Hospitalization)
  Sender: EISAI
  Company Number: None

PATIENT
  Age: 79 Year
  Sex: Male
  Weight: 85 kg

DRUGS (1)
  1. LENVATINIB [Suspect]
     Active Substance: LENVATINIB
     Indication: Hepatocellular carcinoma
     Route: 048
     Dates: start: 20240806, end: 20240826

REACTIONS (4)
  - Pancreatitis necrotising [Unknown]
  - Lipase increased [Unknown]
  - Blood bilirubin increased [Unknown]
  - Hypocalcaemia [Unknown]

NARRATIVE: CASE EVENT DATE: 20240826
